FAERS Safety Report 8877622 (Version 1)
Quarter: 2012Q4

REPORT INFORMATION
  Report Type: Report from Study
  Country: US (occurrence: US)
  Receive Date: 20121030
  Receipt Date: 20121030
  Transmission Date: 20130627
  Serious: No
  Sender: FDA-Public Use
  Company Number: US-ABBOTT-12P-163-0944257-00

PATIENT
  Age: 47 Year
  Sex: Female
  Weight: 90.8 kg

DRUGS (6)
  1. LUPRON DEPOT 3.75 MG [Suspect]
     Indication: UTERINE LEIOMYOMA
     Dosage: Monthly
     Route: 030
     Dates: start: 20120426
  2. DIOVAN [Concomitant]
     Indication: PRODUCT USED FOR UNKNOWN INDICATION
     Dosage: 320mg/25mg- one pill daily
     Route: 048
  3. NORETHINDRONE ACETATE [Concomitant]
     Indication: PRODUCT USED FOR UNKNOWN INDICATION
     Dosage: 5 mg- one pill daily
     Route: 048
  4. CALCIUM [Concomitant]
     Indication: PRODUCT USED FOR UNKNOWN INDICATION
     Dosage: 3 pills in morning, 3 pills in afternoon daily
     Route: 048
  5. MEGA RED KRILL OIL [Concomitant]
     Indication: PRODUCT USED FOR UNKNOWN INDICATION
     Dosage: one capsule daily
     Route: 048
  6. ULTIMATE BP [Concomitant]
     Indication: PRODUCT USED FOR UNKNOWN INDICATION
     Dosage: one pill daily
     Route: 048

REACTIONS (2)
  - Pain [Not Recovered/Not Resolved]
  - Metrorrhagia [Unknown]
